FAERS Safety Report 6174857-0 (Version None)
Quarter: 2009Q2

REPORT INFORMATION
  Report Type: 
  Country: None (occurrence: None)
  Receive Date: 20090430
  Receipt Date: 20081202
  Transmission Date: 20091009
  Serious: No
  Sender: FDA-Public Use
  Company Number: US-ASTRAZENECA-2008UW26828

PATIENT
  Age: 22601 Day
  Sex: Female

DRUGS (2)
  1. NEXIUM [Suspect]
     Route: 048
     Dates: start: 20070801, end: 20081107
  2. CRESTOR [Suspect]
     Route: 048
     Dates: start: 20070801

REACTIONS (3)
  - DRUG ADMINISTRATION ERROR [None]
  - DYSPEPSIA [None]
  - VOMITING [None]
